FAERS Safety Report 7545977-0 (Version None)
Quarter: 2011Q2

REPORT INFORMATION
  Report Type: 
  Country: None (occurrence: None)
  Receive Date: 20110614
  Receipt Date: 20110608
  Transmission Date: 20111010
  Serious: Yes (Other)
  Sender: FDA-Public Use
  Company Number: GB-PFIZER INC-2011125726

PATIENT

DRUGS (2)
  1. VENLAFAXINE HCL [Suspect]
     Dosage: UNK
     Dates: end: 20040615
  2. CLOZAPINE [Suspect]
     Dosage: UNK
     Route: 048
     Dates: start: 19960201

REACTIONS (4)
  - EOSINOPHILIA [None]
  - WHITE BLOOD CELL COUNT INCREASED [None]
  - NEUTROPHILIA [None]
  - LEUKOCYTOSIS [None]
